FAERS Safety Report 16737362 (Version 4)
Quarter: 2019Q3

REPORT INFORMATION
  Report Type: Spontaneous
  Country: FR (occurrence: FR)
  Receive Date: 20190823
  Receipt Date: 20190916
  Transmission Date: 20191005
  Serious: Yes (Other)
  Sender: FDA-Public Use
  Company Number: PHHY2019FR193763

PATIENT
  Age: 85 Year
  Sex: Female
  Weight: 75 kg

DRUGS (9)
  1. LANSOPRAZOLE. [Suspect]
     Active Substance: LANSOPRAZOLE
     Indication: GASTROOESOPHAGEAL REFLUX DISEASE
     Dosage: 15 MG, QD
     Route: 048
     Dates: start: 20190724, end: 20190804
  2. FLUCONAZOLE. [Suspect]
     Active Substance: FLUCONAZOLE
     Indication: FUNGAL INFECTION
     Dosage: 100 MG, QD
     Route: 048
     Dates: start: 20190731, end: 20190805
  3. BACTRIM [Suspect]
     Active Substance: SULFAMETHOXAZOLE\TRIMETHOPRIM
     Indication: PERITONITIS
     Dosage: 2 DF, QD
     Route: 048
     Dates: start: 20190728, end: 20190801
  4. PARACETAMOL [Concomitant]
     Active Substance: ACETAMINOPHEN
     Indication: PAIN
     Dosage: 4 G, UNK
     Route: 048
  5. OFLOXACIN. [Suspect]
     Active Substance: OFLOXACIN
     Indication: PERITONITIS
     Dosage: 400 MG, QD
     Route: 048
     Dates: start: 20190725, end: 20190728
  6. METRONIDAZOLE. [Suspect]
     Active Substance: METRONIDAZOLE
     Indication: PERITONITIS
     Dosage: 1500 MG, QD
     Route: 048
     Dates: start: 20190731, end: 20190805
  7. OXAZEPAM. [Suspect]
     Active Substance: OXAZEPAM
     Indication: AGITATION
     Dosage: 15 MG, QD
     Route: 048
     Dates: start: 20190801
  8. INNOHEP [Concomitant]
     Active Substance: TINZAPARIN SODIUM
     Indication: PROPHYLAXIS
     Route: 058
     Dates: start: 20190720
  9. HYDROCHLOROTHIAZIDE. [Suspect]
     Active Substance: HYDROCHLOROTHIAZIDE
     Indication: HYPERTENSION
     Dosage: 25 MG, QD
     Route: 048
     Dates: start: 20190726, end: 20190801

REACTIONS (3)
  - Hallucination [Recovered/Resolved]
  - Agitation [Recovered/Resolved]
  - Neutropenia [Recovering/Resolving]

NARRATIVE: CASE EVENT DATE: 20190731
